FAERS Safety Report 9069972 (Version 2)
Quarter: 2013Q1

REPORT INFORMATION
  Report Type: Spontaneous
  Country: JP (occurrence: JP)
  Receive Date: 20130215
  Receipt Date: 20130227
  Transmission Date: 20140127
  Serious: Yes (Other)
  Sender: FDA-Public Use
  Company Number: JP-PFIZER INC-2013030293

PATIENT
  Age: 98 Year
  Sex: Male

DRUGS (8)
  1. CELECOX [Suspect]
     Indication: LUMBAR SPINAL STENOSIS
     Dosage: 100 MG, 2X/DAY
     Route: 048
     Dates: start: 20121228, end: 20130108
  2. REZALTAS [Concomitant]
     Indication: HYPERTENSION
     Dosage: 1 DF, 1X/DAY
     Dates: start: 20110310, end: 20130108
  3. ZOLPIDEM TARTRATE [Concomitant]
     Indication: INSOMNIA
     Dosage: 10 MG DAILY
     Route: 048
     Dates: start: 20121228, end: 20130115
  4. KENTON [Concomitant]
     Indication: LUMBAR SPINAL STENOSIS
     Dosage: 600 MG, DAILY
     Dates: start: 20091119, end: 20130115
  5. MECOBALAMIN [Concomitant]
     Indication: LUMBAR SPINAL STENOSIS
     Dosage: 1500 MCG DAILY
     Route: 048
     Dates: start: 20091119, end: 20130115
  6. DONASHIN [Concomitant]
     Indication: HYPERTENSION
     Dosage: 1 MG, DAILY
     Dates: start: 20110310, end: 20130115
  7. LIMARMONE [Concomitant]
     Indication: LUMBAR SPINAL STENOSIS
     Dosage: 15 MCG, DAILY
     Dates: start: 20091119, end: 20130115
  8. WASSER V GRAN. [Concomitant]
     Indication: ECZEMA
     Dosage: 1G, DAILY
     Dates: start: 20121127, end: 20130115

REACTIONS (1)
  - Oculomucocutaneous syndrome [Recovered/Resolved]
